FAERS Safety Report 16936972 (Version 2)
Quarter: 2019Q4

REPORT INFORMATION
  Report Type: Report from Study
  Country: AU (occurrence: AU)
  Receive Date: 20191018
  Receipt Date: 20191126
  Transmission Date: 20200122
  Serious: Yes (Hospitalization, Other)
  Sender: FDA-Public Use
  Company Number: PHHY2019AU203458

PATIENT
  Age: 42 Year
  Sex: Female

DRUGS (8)
  1. OCRELIZUMAB. [Concomitant]
     Active Substance: OCRELIZUMAB
     Indication: RELAPSING-REMITTING MULTIPLE SCLEROSIS
     Dosage: 600 MG (24 WEEKLY)
     Route: 065
     Dates: start: 20180131
  2. ESCITALOPRAM [Concomitant]
     Active Substance: ESCITALOPRAM OXALATE
     Dosage: 10 MG, UNK
     Route: 065
     Dates: start: 20080701
  3. MELATONIN [Concomitant]
     Active Substance: MELATONIN
     Indication: PRODUCT USED FOR UNKNOWN INDICATION
     Dosage: 2 MG, QD (DAILY AT NIGHT, SWALLOW WHOLE. TAKE AFTER FOOD)
     Route: 048
     Dates: start: 201907
  4. GILENYA [Suspect]
     Active Substance: FINGOLIMOD HYDROCHLORIDE
     Indication: RELAPSING-REMITTING MULTIPLE SCLEROSIS
     Dosage: 0.5 MG, QD
     Route: 048
     Dates: start: 20131010, end: 20171015
  5. GILENYA [Suspect]
     Active Substance: FINGOLIMOD HYDROCHLORIDE
     Dosage: UNK
     Route: 065
  6. ESCITALOPRAM [Concomitant]
     Active Substance: ESCITALOPRAM OXALATE
     Indication: ANXIETY
     Dosage: 1 DF, QD
     Route: 065
  7. AMITRIPTYLINE [Concomitant]
     Active Substance: AMITRIPTYLINE
     Indication: NEURALGIA
     Dosage: 1 DF (DAILY AT NIGHT), QD
     Route: 048
  8. AMITRIPTYLINE [Concomitant]
     Active Substance: AMITRIPTYLINE
     Dosage: 50 MG, UNK
     Route: 065
     Dates: start: 20170828

REACTIONS (26)
  - Multiple sclerosis relapse [Recovering/Resolving]
  - Pain in extremity [Unknown]
  - Musculoskeletal pain [Unknown]
  - Sinus rhythm [Unknown]
  - Arthralgia [Unknown]
  - Diplopia [Unknown]
  - Stress [Unknown]
  - Respiratory rate increased [Unknown]
  - Fibrin D dimer increased [Unknown]
  - Urinary tract infection [Recovered/Resolved]
  - Headache [Unknown]
  - Muscular weakness [Unknown]
  - Fatigue [Unknown]
  - Genital herpes [Unknown]
  - Gait disturbance [Unknown]
  - Paraesthesia [Unknown]
  - Parasitic gastroenteritis [Recovered/Resolved]
  - Tachycardia [Recovered/Resolved]
  - Glomerular filtration rate decreased [Unknown]
  - Urethritis [Unknown]
  - Visual impairment [Unknown]
  - Perineal infection [Recovered/Resolved]
  - Respiratory tract infection [Unknown]
  - Blood albumin decreased [Unknown]
  - Dry mouth [Unknown]
  - Muscle spasms [Unknown]

NARRATIVE: CASE EVENT DATE: 20131017
